FAERS Safety Report 10186035 (Version 2)
Quarter: 2014Q2

REPORT INFORMATION
  Report Type: Spontaneous
  Country: US (occurrence: US)
  Receive Date: 20140521
  Receipt Date: 20140522
  Transmission Date: 20141212
  Serious: No
  Sender: FDA-Public Use
  Company Number: US-ASTRAZENECA-2013SE71223

PATIENT
  Age: 46 Year
  Sex: Female
  Weight: 59 kg

DRUGS (4)
  1. PULMICORT FLEXHALER [Suspect]
     Indication: ASTHMA
     Route: 055
     Dates: start: 201208
  2. FLUTICASONE [Concomitant]
     Indication: MULTIPLE ALLERGIES
     Route: 045
  3. ZYRTEC [Concomitant]
     Indication: MULTIPLE ALLERGIES
     Route: 048
  4. ALBUTEROL [Concomitant]
     Indication: ASTHMA

REACTIONS (2)
  - Non-cardiac chest pain [Recovered/Resolved]
  - Drug dose omission [Not Recovered/Not Resolved]
